FAERS Safety Report 9447641 (Version 3)
Quarter: 2014Q2

REPORT INFORMATION
  Report Type: Spontaneous
  Country: JP (occurrence: JP)
  Receive Date: 20130808
  Receipt Date: 20140407
  Transmission Date: 20141212
  Serious: Yes (Life-Threatening, Hospitalization, Disabling)
  Sender: FDA-Public Use
  Company Number: JP-CELGENEUS-087-21880-13072660

PATIENT
  Age: 74 Year
  Sex: Male

DRUGS (10)
  1. REVLIMID [Suspect]
     Indication: PLASMA CELL MYELOMA
     Dosage: 15 MILLIGRAM
     Route: 048
     Dates: start: 20130530, end: 20130710
  2. LENADEX [Suspect]
     Indication: PLASMA CELL MYELOMA
     Route: 048
     Dates: start: 20130530, end: 20130710
  3. MAGLAX [Concomitant]
     Indication: CONSTIPATION
     Dosage: 990 MILLIGRAM
     Route: 048
     Dates: start: 20130530, end: 20130710
  4. PURSENNID [Concomitant]
     Indication: CONSTIPATION
     Dosage: 24 MILLIGRAM
     Route: 048
     Dates: start: 20130530, end: 20130710
  5. NEXIUM [Concomitant]
     Indication: GASTRITIS
     Dosage: 10 MILLIGRAM
     Route: 048
     Dates: start: 20130530, end: 20130710
  6. DUROTEP [Concomitant]
     Indication: PAIN
     Dosage: 2.1 MILLIGRAM
     Route: 062
     Dates: start: 20130530, end: 20130710
  7. BAYASPIRIN [Concomitant]
     Indication: THROMBOSIS PROPHYLAXIS
     Dosage: 100 MILLIGRAM
     Route: 048
     Dates: start: 20130530, end: 20130710
  8. DOGMATYL [Concomitant]
     Indication: ANXIETY
     Dosage: 150 MILLIGRAM
     Route: 048
     Dates: start: 20130530, end: 20130710
  9. ULCERLMIN [Concomitant]
     Indication: PRODUCT USED FOR UNKNOWN INDICATION
     Route: 065
     Dates: start: 201307
  10. LAC-B [Concomitant]
     Indication: PRODUCT USED FOR UNKNOWN INDICATION
     Route: 065
     Dates: start: 201307

REACTIONS (1)
  - Mesenteric vein thrombosis [Recovered/Resolved with Sequelae]
